FAERS Safety Report 6616378-4 (Version None)
Quarter: 2010Q1

REPORT INFORMATION
  Report Type: 
  Country: None (occurrence: None)
  Receive Date: 20100226
  Receipt Date: 20100222
  Transmission Date: 20100710
  Serious: Yes (Hospitalization)
  Sender: FDA-Public Use
  Company Number: 2010000185

PATIENT
  Age: 63 Year
  Sex: Male

DRUGS (6)
  1. EFFENTORA (TABLET) [Suspect]
     Indication: CANCER PAIN
     Dosage: (100 MCG), BU
     Route: 002
  2. FENTANYL PATCH (PARACETAMOL, ORPHENADRINE CITRATE) [Concomitant]
  3. VENDAL (MORPHINE SULFATE) [Concomitant]
  4. OXAZEPAM [Concomitant]
  5. PANTOPRAZOLE SODIUM [Concomitant]
  6. FORTECORTIN [Concomitant]

REACTIONS (4)
  - HYPERSENSITIVITY [None]
  - PHARYNGEAL OEDEMA [None]
  - SENSATION OF FOREIGN BODY [None]
  - SWELLING FACE [None]
